FAERS Safety Report 26116061 (Version 2)
Quarter: 2025Q4

REPORT INFORMATION
  Report Type: Report from Study
  Country: US (occurrence: US)
  Receive Date: 20251203
  Receipt Date: 20251217
  Transmission Date: 20260118
  Serious: Yes (Death)
  Sender: ROCHE
  Company Number: US-ROCHE-10000394129

PATIENT
  Age: 63 Year
  Sex: Female

DRUGS (3)
  1. HEMLIBRA [Suspect]
     Active Substance: EMICIZUMAB-KXWH
     Indication: Acquired haemophilia
     Dosage: DOSE: 12 MG /0.4 ML , 1 VIAL + 30 MG/1 ML , 1 VIAL + 60MG /0.4 ML , 1 VIAL (0.4 ML) TO MLS TO 1.7 MLS WEEKLY
     Route: 058
  2. HEMLIBRA [Suspect]
     Active Substance: EMICIZUMAB-KXWH
     Dosage: DOSE: 12 MG /0.4 ML , 1 VIAL + 30 MG/1 ML , 1 VIAL + 60MG /0.4 ML , 1 VIAL (0.4 ML) TO MLS TO 1.7 MLS WEEKLY
     Route: 058
  3. NOVOSEVEN [Concomitant]
     Active Substance: COAGULATION FACTOR VIIA RECOMBINANT HUMAN

REACTIONS (3)
  - Off label use [Unknown]
  - Death [Fatal]
  - Product prescribing error [Unknown]

NARRATIVE: CASE EVENT DATE: 20251129
